FAERS Safety Report 13015140 (Version 1)
Quarter: 2016Q4

REPORT INFORMATION
  Report Type: Spontaneous
  Country: US (occurrence: US)
  Receive Date: 20161211
  Receipt Date: 20161211
  Transmission Date: 20170207
  Serious: No
  Sender: FDA-Public Use
  Company Number: US-ASTRAZENECA-2016SF26984

PATIENT
  Sex: Female

DRUGS (2)
  1. NUPLAZID [Concomitant]
     Active Substance: PIMAVANSERIN TARTRATE
  2. SEROQUEL [Suspect]
     Active Substance: QUETIAPINE FUMARATE
     Dosage: 25 MG , ONE AT 7, ONE AT 3, AND 4 (100 MG ) AT NIGHT
     Route: 048

REACTIONS (2)
  - Nervousness [Unknown]
  - Intentional product misuse [Unknown]
